FAERS Safety Report 6017221-7 (Version None)
Quarter: 2008Q4

REPORT INFORMATION
  Report Type: 
  Country: None (occurrence: None)
  Receive Date: 20081219
  Receipt Date: 20081209
  Transmission Date: 20090506
  Serious: Yes (Death)
  Sender: FDA-Public Use
  Company Number: 2008S1022035

PATIENT
  Age: 93 Year
  Sex: Female

DRUGS (7)
  1. FENTANYL TRANSDERMAL SYSTEM [Suspect]
     Indication: BACK PAIN
     Dosage: 50 UG; EVERY HOUR; TRANSDERMAL
     Route: 062
     Dates: start: 20060101, end: 20081129
  2. VICODIN [Suspect]
     Indication: BREAKTHROUGH PAIN
     Dosage: ; DAILY; ORAL
     Route: 048
     Dates: end: 20081101
  3. ARICEPT [Concomitant]
  4. LEVOTHYROXINE [Concomitant]
  5. MEGESTROL ACETATE [Concomitant]
  6. GLIPIZIDE [Concomitant]
  7. CENTRUM SILVER /01292501/ [Concomitant]

REACTIONS (7)
  - CARDIAC ARREST [None]
  - CONDITION AGGRAVATED [None]
  - DIVERTICULUM [None]
  - FATIGUE [None]
  - INCORRECT DOSE ADMINISTERED [None]
  - NAUSEA [None]
  - VOMITING [None]
